FAERS Safety Report 25906362 (Version 1)
Quarter: 2025Q4

REPORT INFORMATION
  Report Type: Spontaneous
  Country: US (occurrence: None)
  Receive Date: 20251009
  Receipt Date: 20251009
  Transmission Date: 20260117
  Serious: Yes (Life-Threatening, Hospitalization)
  Sender: FDA-CTU
  Company Number: None

PATIENT
  Age: 44 Year
  Sex: Female
  Weight: 62 kg

DRUGS (1)
  1. YESINTEK [Suspect]
     Active Substance: USTEKINUMAB-KFCE
     Indication: Crohn^s disease
     Dosage: OTHER FREQUENCY : Q 56 DAYS;?
     Route: 058

REACTIONS (4)
  - Sepsis [None]
  - Empyema [None]
  - Streptococcus test positive [None]
  - Therapy interrupted [None]

NARRATIVE: CASE EVENT DATE: 20250811
